FAERS Safety Report 8502115-5 (Version None)
Quarter: 2012Q3

REPORT INFORMATION
  Report Type: 
  Country: None (occurrence: None)
  Receive Date: 20120711
  Receipt Date: 20120625
  Transmission Date: 20120928
  Serious: No
  Sender: FDA-Public Use
  Company Number: CA-JNJFOC-20120613154

PATIENT
  Sex: Female
  Weight: 59 kg

DRUGS (2)
  1. CODEINE SULFATE [Concomitant]
     Route: 065
  2. REMICADE [Suspect]
     Indication: ANKYLOSING SPONDYLITIS
     Route: 042
     Dates: start: 20111003

REACTIONS (3)
  - NASOPHARYNGITIS [None]
  - RALES [None]
  - OROPHARYNGEAL PAIN [None]
